FAERS Safety Report 9715726 (Version 1)
Quarter: 2013Q4

REPORT INFORMATION
  Report Type: Spontaneous
  Country: US (occurrence: US)
  Receive Date: 20131127
  Receipt Date: 20131127
  Transmission Date: 20140711
  Serious: No
  Sender: FDA-Public Use
  Company Number: US-009507513-1311USA010975

PATIENT
  Sex: Female

DRUGS (3)
  1. NASONEX [Suspect]
     Indication: RHINITIS
     Dosage: 2 SPRAYS (OF 50 MICROGRAM), QAM
     Route: 045
  2. NASONEX [Suspect]
     Dosage: 2 SPRAYS (OF 50 MICROGRAM), QPM
     Route: 045
  3. Z-PAK [Concomitant]

REACTIONS (2)
  - Psychomotor hyperactivity [Unknown]
  - Visual impairment [Unknown]
